FAERS Safety Report 10184719 (Version 1)
Quarter: 2014Q2

REPORT INFORMATION
  Report Type: Spontaneous
  Country: US (occurrence: US)
  Receive Date: 20140521
  Receipt Date: 20140521
  Transmission Date: 20141212
  Serious: No
  Sender: FDA-Public Use
  Company Number: US-009507513-1405USA007414

PATIENT
  Age: 26 Year
  Sex: Female
  Weight: 72.11 kg

DRUGS (1)
  1. NEXPLANON [Suspect]
     Indication: CONTRACEPTION
     Dosage: ONE ROD, EVERY THREE YEARS
     Route: 059
     Dates: start: 20140429

REACTIONS (2)
  - Limb discomfort [Recovering/Resolving]
  - Pain in extremity [Recovering/Resolving]
